FAERS Safety Report 23883077 (Version 2)
Quarter: 2024Q2

REPORT INFORMATION
  Report Type: Spontaneous
  Country: US (occurrence: US)
  Receive Date: 20240522
  Receipt Date: 20240527
  Transmission Date: 20240715
  Serious: Yes (Hospitalization, Other)
  Sender: FDA-Public Use
  Company Number: US-ALKEM LABORATORIES LIMITED-US-ALKEM-2024-09987

PATIENT
  Age: 61 Year
  Sex: Male

DRUGS (13)
  1. QUETIAPINE FUMARATE [Interacting]
     Active Substance: QUETIAPINE FUMARATE
     Indication: Bipolar disorder
     Dosage: 400 MILLIGRAM, QD, FILM-COATED TABLET
     Route: 048
  2. QUETIAPINE FUMARATE [Interacting]
     Active Substance: QUETIAPINE FUMARATE
     Indication: Arthritis
     Dosage: 300 MILLIGRAM, HS (DAILY AT BEDTIME)
     Route: 048
  3. QUETIAPINE FUMARATE [Interacting]
     Active Substance: QUETIAPINE FUMARATE
     Dosage: 600 MILLIGRAM, QD (TITRATED)
     Route: 048
  4. TRAZODONE [Interacting]
     Active Substance: TRAZODONE HYDROCHLORIDE
     Indication: Product used for unknown indication
     Dosage: UNK
     Route: 065
  5. PSEUDOEPHEDRINE [Suspect]
     Active Substance: PSEUDOEPHEDRINE
     Indication: Priapism
     Dosage: 60 MILLIGRAM, QID (ONE DOSE) EVERY 6 HOURS
     Route: 048
  6. FLUOXETINE HYDROCHLORIDE [Interacting]
     Active Substance: FLUOXETINE HYDROCHLORIDE
     Indication: Product used for unknown indication
     Dosage: 60 MILLIGRAM, QD
     Route: 065
  7. ASPIRIN [Concomitant]
     Active Substance: ASPIRIN
     Indication: Arthritis
     Dosage: 650 MILLIGRAM, PRN (EVERY 4 HOURS)
     Route: 065
  8. CEPHALEXIN [Concomitant]
     Active Substance: CEPHALEXIN
     Indication: Cellulitis
     Dosage: 500 MILLIGRAM, QID
     Route: 065
  9. Diphenhydramine cocktail [Concomitant]
     Indication: Agitation
     Dosage: 50 MILLIGRAM
     Route: 065
  10. HALOPERIDOL [Concomitant]
     Active Substance: HALOPERIDOL
     Indication: Agitation
     Dosage: 5 MILLIGRAM
     Route: 048
  11. HYDROXYZINE [Concomitant]
     Active Substance: HYDROXYZINE HYDROCHLORIDE
     Indication: Anxiety
     Dosage: 50 MILLIGRAM, PRN (EVERY 4 HOURS AS NEEDED)
     Route: 065
  12. LORAZEPAM [Concomitant]
     Active Substance: LORAZEPAM
     Indication: Agitation
     Dosage: 2 MILLIGRAM
     Route: 065
  13. METHAMPHETAMINE [Concomitant]
     Active Substance: METHAMPHETAMINE
     Indication: Substance use disorder
     Dosage: UNK (5 TO 6 TIMES A WEEK)
     Route: 065

REACTIONS (5)
  - Priapism [Recovering/Resolving]
  - Drug interaction [Unknown]
  - Prescription drug used without a prescription [Unknown]
  - Drug ineffective for unapproved indication [Unknown]
  - Off label use [Unknown]
